FAERS Safety Report 13126427 (Version 3)
Quarter: 2017Q2

REPORT INFORMATION
  Report Type: Report from Study
  Country: JP (occurrence: JP)
  Receive Date: 20170118
  Receipt Date: 20170609
  Transmission Date: 20170830
  Serious: Yes (Other)
  Sender: FDA-Public Use
  Company Number: JP-BEH-2017077276

PATIENT
  Sex: Female
  Weight: 53.3 kg

DRUGS (4)
  1. HIZENTRA [Suspect]
     Active Substance: HUMAN IMMUNOGLOBULIN G
     Indication: PRIMARY IMMUNODEFICIENCY SYNDROME
  2. HIZENTRA [Suspect]
     Active Substance: HUMAN IMMUNOGLOBULIN G
     Indication: IMMUNODEFICIENCY COMMON VARIABLE
  3. HIZENTRA [Suspect]
     Active Substance: HUMAN IMMUNOGLOBULIN G
     Indication: HYPOGAMMAGLOBULINAEMIA
     Dosage: 25 ML, QW
     Route: 065
     Dates: start: 20140722, end: 20150117
  4. ALLEGRA [Concomitant]
     Active Substance: FEXOFENADINE HYDROCHLORIDE
     Dosage: 60 MG, UNK
     Route: 048

REACTIONS (5)
  - Abscess limb [Unknown]
  - Dry skin [Unknown]
  - Chronic sinusitis [Unknown]
  - Injection site pain [Recovering/Resolving]
  - Excoriation [Unknown]

NARRATIVE: CASE EVENT DATE: 20140722
